FAERS Safety Report 19610570 (Version 2)
Quarter: 2021Q3

REPORT INFORMATION
  Report Type: Spontaneous
  Country: US (occurrence: US)
  Receive Date: 20210726
  Receipt Date: 20210826
  Transmission Date: 20211014
  Serious: Yes (Hospitalization, Other)
  Sender: FDA-Public Use
  Company Number: US-B.I. PHARMACEUTICALS,INC./RIDGEFIELD-2021-BI-116505

PATIENT
  Age: 70 Year
  Sex: Male

DRUGS (2)
  1. ATROVENT [Suspect]
     Active Substance: IPRATROPIUM BROMIDE
     Indication: CHRONIC OBSTRUCTIVE PULMONARY DISEASE
     Dosage: INHALED AEROSOL
     Route: 065
     Dates: start: 201806, end: 2019
  2. SPIRIVA [Suspect]
     Active Substance: TIOTROPIUM BROMIDE MONOHYDRATE
     Indication: CHRONIC OBSTRUCTIVE PULMONARY DISEASE
     Dosage: 2 PUFFS FROM 1 CAPSULE DAILY
     Route: 065
     Dates: start: 201806

REACTIONS (5)
  - Cardiac failure congestive [Recovered/Resolved]
  - Renal failure [Recovered/Resolved]
  - Myocardial infarction [Recovered/Resolved]
  - Hepatic failure [Recovered/Resolved]
  - Expired product administered [Unknown]

NARRATIVE: CASE EVENT DATE: 202104
